FAERS Safety Report 6187885-6 (Version None)
Quarter: 2009Q2

REPORT INFORMATION
  Report Type: 
  Country: None (occurrence: None)
  Receive Date: 20090513
  Receipt Date: 20090508
  Transmission Date: 20091009
  Serious: Yes (Other)
  Sender: FDA-Public Use
  Company Number: ES-BAYER-200920118GPV

PATIENT
  Age: 80 Year
  Sex: Male
  Weight: 60 kg

DRUGS (2)
  1. ADIRO [Suspect]
     Indication: CEREBROVASCULAR INSUFFICIENCY
     Dosage: TOTAL DAILY DOSE: 100 MG  UNIT DOSE: 100 MG
     Route: 048
     Dates: start: 20090313
  2. AZILECT [Suspect]
     Indication: PARKINSON'S DISEASE
     Dosage: TOTAL DAILY DOSE: 1 DF  UNIT DOSE: 1 MG
     Route: 048
     Dates: start: 20090313, end: 20090321

REACTIONS (1)
  - URINARY RETENTION [None]
